FAERS Safety Report 17313247 (Version 1)
Quarter: 2020Q1

REPORT INFORMATION
  Report Type: Spontaneous
  Country: US (occurrence: US)
  Receive Date: 20200123
  Receipt Date: 20200123
  Transmission Date: 20200409
  Serious: Yes (Disabling)
  Sender: FDA-Public Use
  Company Number: None

PATIENT
  Age: 39 Year
  Sex: Female
  Weight: 83.91 kg

DRUGS (1)
  1. PARAGARD T 380A [Suspect]
     Active Substance: COPPER
     Dates: start: 20191028, end: 20200112

REACTIONS (9)
  - Vaginal haemorrhage [None]
  - Muscle spasms [None]
  - Alopecia [None]
  - Anger [None]
  - Weight increased [None]
  - Anxiety [None]
  - Depression [None]
  - Feeling abnormal [None]
  - Pregnancy test false positive [None]

NARRATIVE: CASE EVENT DATE: 20191201
